FAERS Safety Report 7125078-6 (Version None)
Quarter: 2010Q4

REPORT INFORMATION
  Report Type: 
  Country: None (occurrence: None)
  Receive Date: 20101129
  Receipt Date: 20101117
  Transmission Date: 20110411
  Serious: Yes (Hospitalization, Other)
  Sender: FDA-Public Use
  Company Number: JP-PFIZER INC-2010138885

PATIENT
  Age: 60 Year
  Sex: Female
  Weight: 50 kg

DRUGS (21)
  1. ZOLOFT [Suspect]
     Indication: DEPRESSION
     Dosage: 50 MG, 1X/DAY
     Route: 048
     Dates: start: 20101009, end: 20101016
  2. ZOLOFT [Suspect]
     Dosage: 100 MG/DAY
     Route: 048
     Dates: start: 20101026
  3. ZOLOFT [Suspect]
     Dosage: 75 MG, 1X/DAY
     Route: 048
     Dates: start: 20101017, end: 20101025
  4. ZOLOFT [Suspect]
     Dosage: 50 MG, 1X/DAY
     Route: 048
     Dates: start: 20101027
  5. SOLANAX [Suspect]
     Indication: CHEST DISCOMFORT
     Dosage: 0.8 MG/DAY
     Route: 048
     Dates: start: 20101004
  6. SOLANAX [Suspect]
     Dosage: 0.4 MG, 1X/DAY
     Route: 048
     Dates: start: 20090101, end: 20101025
  7. SOLANAX [Suspect]
     Dosage: 0.8 MG, 2X/DAY
     Route: 048
     Dates: start: 20101026
  8. LENDORMIN [Suspect]
     Dosage: 0.25 MG /DAY
     Route: 048
     Dates: start: 20101004
  9. DOGMATYL [Concomitant]
     Indication: DEPRESSION
     Dosage: 150 MG/DAY
     Route: 048
     Dates: start: 20101004
  10. DOGMATYL [Concomitant]
     Dosage: 50 MG, 1X/DAY
     Route: 048
     Dates: start: 20101009, end: 20101011
  11. DOGMATYL [Concomitant]
     Dosage: 100 MG, 2X/DAY
     Route: 048
     Dates: start: 20101012, end: 20101012
  12. DOGMATYL [Concomitant]
     Dosage: 150 MG, 3X/DAY
     Route: 048
     Dates: start: 20101013, end: 20101108
  13. BENZALIN [Concomitant]
     Indication: INSOMNIA
     Dosage: 10 MG/DAY
     Route: 048
     Dates: start: 20101004
  14. BENZALIN [Concomitant]
     Dosage: 5 MG, 1X/DAY
     Route: 048
     Dates: start: 20101009, end: 20101016
  15. BENZALIN [Concomitant]
     Dosage: 10 MG, 1X/DAY
     Route: 048
     Dates: start: 20101017
  16. PAXIL [Concomitant]
     Indication: DEPRESSION
     Dosage: 20 MG, 1X/DAY
     Route: 048
     Dates: start: 20100601, end: 20101008
  17. PAXIL [Concomitant]
     Dosage: 10 MG, 1X/DAY
     Route: 048
     Dates: start: 20101009, end: 20101025
  18. PAXIL [Concomitant]
     Dosage: 20 MG, 1X/DAY
     Route: 048
     Dates: start: 20101027, end: 20101029
  19. PAXIL [Concomitant]
     Dosage: 30 MG, 1X/DAY
     Route: 048
     Dates: start: 20101030, end: 20101105
  20. PAXIL [Concomitant]
     Dosage: 40 MG, 1X/DAY
     Route: 048
     Dates: start: 20101106
  21. EURODIN [Concomitant]
     Indication: INSOMNIA
     Dosage: 2 MG, 1X/DAY
     Route: 048
     Dates: start: 20101012, end: 20101025

REACTIONS (5)
  - CHEST DISCOMFORT [None]
  - DEPERSONALISATION [None]
  - DEPRESSION [None]
  - FEELING ABNORMAL [None]
  - LISTLESS [None]
